FAERS Safety Report 14879900 (Version 1)
Quarter: 2018Q2

REPORT INFORMATION
  Report Type: Spontaneous
  Country: FR (occurrence: FR)
  Receive Date: 20180511
  Receipt Date: 20180511
  Transmission Date: 20180711
  Serious: Yes (Other)
  Sender: FDA-Public Use
  Company Number: FR-MERCK KGAA-2047605

PATIENT
  Age: 62 Year
  Sex: Female

DRUGS (1)
  1. NOVOTHYROX [Suspect]
     Active Substance: LEVOTHYROXINE SODIUM
     Indication: AUTOIMMUNE THYROIDITIS

REACTIONS (25)
  - Sleep disorder [None]
  - Discomfort [None]
  - Stress [None]
  - Palpitations [None]
  - Dyspnoea [None]
  - Tremor [None]
  - Hypertension [None]
  - Headache [None]
  - Dizziness [None]
  - Loss of personal independence in daily activities [None]
  - Loss of libido [None]
  - Social avoidant behaviour [None]
  - Chest discomfort [None]
  - Fatigue [None]
  - Irritability [None]
  - Depression [None]
  - Amnesia [None]
  - Fear of falling [None]
  - Emotional distress [None]
  - Tachycardia [None]
  - Decreased activity [None]
  - Weight increased [None]
  - Asthenia [None]
  - Nervousness [None]
  - Alopecia [None]

NARRATIVE: CASE EVENT DATE: 201706
